FAERS Safety Report 7690409-5 (Version None)
Quarter: 2011Q3

REPORT INFORMATION
  Report Type: 
  Country: None (occurrence: None)
  Receive Date: 20110818
  Receipt Date: 20110812
  Transmission Date: 20111222
  Serious: Yes (Other)
  Sender: FDA-Public Use
  Company Number: PHEH2011US00897

PATIENT

DRUGS (4)
  1. LIPITOR [Concomitant]
  2. RECLAST [Suspect]
     Indication: OSTEOPOROSIS
     Dosage: 5 MG
     Route: 042
     Dates: start: 20110727
  3. MICARDIS [Concomitant]
  4. EVISTA [Concomitant]

REACTIONS (5)
  - PAIN IN EXTREMITY [None]
  - ERYTHEMA [None]
  - ERYTHROMELALGIA [None]
  - GAIT DISTURBANCE [None]
  - BURNING SENSATION [None]
